FAERS Safety Report 10705730 (Version 2)
Quarter: 2022Q3

REPORT INFORMATION
  Report Type: Spontaneous
  Country: CN (occurrence: CN)
  Receive Date: 20150112
  Receipt Date: 20220821
  Transmission Date: 20221026
  Serious: Yes (Hospitalization, Other)
  Sender: FDA-Public Use
  Company Number: CN-GLAXOSMITHKLINE-CN2015GSK000080

PATIENT
  Age: 47 Year
  Sex: Female
  Weight: 67.5 kg

DRUGS (2)
  1. HEPTODIN [Suspect]
     Active Substance: LAMIVUDINE
     Indication: Hepatitis B
     Dosage: 1 UNK, QD
     Route: 048
     Dates: start: 2012, end: 201412
  2. UNSPECIFIED INGREDIENT [Suspect]
     Active Substance: UNSPECIFIED INGREDIENT
     Indication: Diabetes mellitus

REACTIONS (1)
  - Gastric cancer [Unknown]
